FAERS Safety Report 19191233 (Version 1)
Quarter: 2021Q2

REPORT INFORMATION
  Report Type: Spontaneous
  Country: US (occurrence: US)
  Receive Date: 20210428
  Receipt Date: 20210428
  Transmission Date: 20210717
  Serious: Yes (Life-Threatening, Hospitalization)
  Sender: FDA-Public Use
  Company Number: US-PRINSTON PHARMACEUTICAL INC.-2021PRN00147

PATIENT
  Age: 25 Year
  Sex: Female

DRUGS (3)
  1. PROMETHAZINE HYDROCHLORIDE. [Suspect]
     Active Substance: PROMETHAZINE HYDROCHLORIDE
     Dosage: 1.5 G, ONCE
     Route: 048
  2. DILTIAZEM SUSTAINED RELEASE [Suspect]
     Active Substance: DILTIAZEM HYDROCHLORIDE
     Dosage: 90 TABLETS, ONCE (16.2 G TOTAL)
     Route: 048
  3. TRAZODONE [Suspect]
     Active Substance: TRAZODONE HYDROCHLORIDE
     Dosage: 3 G, ONCE
     Route: 048

REACTIONS (3)
  - Tachycardia [Recovered/Resolved]
  - Suicide attempt [Recovered/Resolved]
  - Encephalopathy [Recovered/Resolved]
